FAERS Safety Report 9423510 (Version 1)
Quarter: 2013Q3

REPORT INFORMATION
  Report Type: Spontaneous
  Country: US (occurrence: US)
  Receive Date: 20130726
  Receipt Date: 20130726
  Transmission Date: 20140515
  Serious: No
  Sender: FDA-Public Use
  Company Number: US-GALDERMA-US13000219

PATIENT
  Age: 16 Year
  Sex: Female

DRUGS (3)
  1. DIFFERIN (ADAPALENE) GEL, 0.3% [Suspect]
     Indication: ACNE
     Route: 061
     Dates: start: 2010, end: 2012
  2. CETAPHIL MOISTURIZING LOTION [Suspect]
     Indication: DRY SKIN PROPHYLAXIS
     Dates: start: 2010, end: 20120114
  3. DUAC [Suspect]
     Indication: ACNE
     Route: 061
     Dates: start: 2010

REACTIONS (4)
  - Skin burning sensation [Unknown]
  - Skin exfoliation [Unknown]
  - Dry skin [Unknown]
  - Sunburn [Unknown]
